FAERS Safety Report 8710158 (Version 2)
Quarter: 2013Q4

REPORT INFORMATION
  Report Type: Spontaneous
  Country: US (occurrence: US)
  Receive Date: 20120806
  Receipt Date: 20131101
  Transmission Date: 20140711
  Serious: No
  Sender: FDA-Public Use
  Company Number: US-009507513-1207USA011862

PATIENT
  Sex: Female

DRUGS (5)
  1. DULERA [Suspect]
  2. SPIRIVA [Suspect]
  3. ADVAIR [Suspect]
  4. SYMBICORT [Concomitant]
  5. ASMANEX [Concomitant]

REACTIONS (1)
  - Drug ineffective [Unknown]
